FAERS Safety Report 12186845 (Version 3)
Quarter: 2019Q2

REPORT INFORMATION
  Report Type: Spontaneous
  Country: US (occurrence: US)
  Receive Date: 20160317
  Receipt Date: 20190621
  Transmission Date: 20190711
  Serious: Yes (Other)
  Sender: FDA-Public Use
  Company Number: US-PFIZER INC-2016160642

PATIENT
  Age: 61 Year
  Sex: Male
  Weight: 113 kg

DRUGS (6)
  1. SIROLIMUS. [Suspect]
     Active Substance: SIROLIMUS
     Dosage: 0.5 MG, DAILY
  2. SIROLIMUS. [Suspect]
     Active Substance: SIROLIMUS
     Indication: PROPHYLAXIS AGAINST TRANSPLANT REJECTION
     Dosage: 1 MG, 4X/DAY
     Dates: start: 201308
  3. SIROLIMUS. [Suspect]
     Active Substance: SIROLIMUS
     Dosage: 2.5 MG, DAILY IN AM
  4. SIROLIMUS. [Suspect]
     Active Substance: SIROLIMUS
     Dosage: 1 MG, 3X/DAY
  5. SIROLIMUS. [Suspect]
     Active Substance: SIROLIMUS
     Dosage: 2 MG, DAILY
  6. SIROLIMUS. [Suspect]
     Active Substance: SIROLIMUS
     Dosage: 2.5 MG, 1X/DAY(2.5 MGS IN AM DAILY)

REACTIONS (2)
  - Tooth loss [Unknown]
  - Skin cancer [Recovering/Resolving]
